FAERS Safety Report 25944816 (Version 1)
Quarter: 2025Q4

REPORT INFORMATION
  Report Type: Report from Study
  Country: US (occurrence: US)
  Receive Date: 20251021
  Receipt Date: 20251021
  Transmission Date: 20260118
  Serious: Yes (Other)
  Sender: ALEXION PHARMACEUTICALS
  Company Number: US-ASTRAZENECA-202510NAM015491US

PATIENT
  Age: 45 Year
  Sex: Female

DRUGS (2)
  1. STRENSIQ [Suspect]
     Active Substance: ASFOTASE ALFA
     Indication: Phosphorus metabolism disorder
     Dosage: 1 MILLIGRAM/KILOGRAM, SIX TIMES/WEEK
     Route: 065
  2. CALCIUM [Suspect]
     Active Substance: CALCIUM
     Dosage: UNK
     Route: 065

REACTIONS (3)
  - Haematochezia [Unknown]
  - Anal haemorrhage [Unknown]
  - Constipation [Unknown]
